FAERS Safety Report 5276680-8 (Version None)
Quarter: 2007Q1

REPORT INFORMATION
  Report Type: 
  Country: None (occurrence: None)
  Receive Date: 20070327
  Receipt Date: 20070315
  Transmission Date: 20070707
  Serious: Yes (Hospitalization)
  Sender: FDA-Public Use
  Company Number: PHNU2007DE01223

PATIENT
  Sex: Female

DRUGS (15)
  1. LEPONEX [Suspect]
     Indication: BIPOLAR DISORDER
     Dosage: 25 MG/DAY
     Route: 048
     Dates: start: 20060830, end: 20060830
  2. LEPONEX [Suspect]
     Dosage: 25 MG/DAY
     Route: 048
     Dates: start: 20060905, end: 20060905
  3. LEPONEX [Suspect]
     Dosage: 25 MG/DAY
     Route: 048
     Dates: start: 20060907, end: 20060907
  4. DIAZEPAM [Suspect]
     Dosage: 30 MG/DAY
     Route: 048
     Dates: start: 20060809, end: 20060830
  5. DIAZEPAM [Suspect]
     Dosage: 25 MG/DAY
     Route: 048
     Dates: start: 20060831, end: 20060901
  6. DIAZEPAM [Suspect]
     Dosage: 20 MG/DAY
     Route: 048
     Dates: start: 20060902, end: 20060918
  7. DIAZEPAM [Suspect]
     Dosage: 5 MG/DAY
     Route: 048
     Dates: start: 20060919
  8. ERGENYL [Suspect]
     Dosage: 500 TO 1000 MG/DAY
     Route: 048
     Dates: start: 20060721, end: 20060817
  9. ERGENYL [Suspect]
     Dosage: 1500 MG/DAY
     Route: 048
     Dates: start: 20060818, end: 20060831
  10. ERGENYL [Suspect]
     Dosage: 1000 MG/DAY
     Route: 048
     Dates: start: 20060901
  11. QUILONUM - SLOW RELEASE [Suspect]
     Dosage: 900 MG/DAY
     Route: 048
     Dates: start: 20060816
  12. DYTIDE [Concomitant]
     Dosage: 50 / 25 MG
     Route: 048
     Dates: start: 20060802
  13. LEVOTHYROXINE SODIUM [Concomitant]
     Indication: HYPOTHYROIDISM
     Dosage: 0.100 MG/DAY
     Route: 048
  14. KALINOR [Concomitant]
     Dosage: 1 DF, QD
     Route: 048
     Dates: start: 20060720, end: 20060830
  15. FERRO-SANOL B [Concomitant]
     Dosage: 1 DF, QD
     Route: 048
     Dates: start: 20060727

REACTIONS (8)
  - BALANCE DISORDER [None]
  - ENURESIS [None]
  - FALL [None]
  - MUSCULOSKELETAL STIFFNESS [None]
  - POSTURE ABNORMAL [None]
  - SALIVARY HYPERSECRETION [None]
  - SEDATION [None]
  - SPEECH DISORDER [None]
